FAERS Safety Report 10945707 (Version 1)
Quarter: 2015Q1

REPORT INFORMATION
  Report Type: Spontaneous
  Country: US (occurrence: None)
  Receive Date: 20150212
  Receipt Date: 20150212
  Transmission Date: 20150721
  Serious: No
  Sender: FDA-Public Use
  Company Number: TPA2011A01021

PATIENT
  Sex: Male

DRUGS (8)
  1. DIGOXIN. [Concomitant]
     Active Substance: DIGOXIN
  2. ULORIC [Suspect]
     Active Substance: FEBUXOSTAT
     Indication: GOUT
     Route: 048
     Dates: start: 20110228
  3. LISINOPRIL. [Concomitant]
     Active Substance: LISINOPRIL
  4. ALDACTONE [Concomitant]
     Active Substance: SPIRONOLACTONE
  5. FUROSEMIDE. [Concomitant]
     Active Substance: FUROSEMIDE
  6. PRILOSEC (OMEPRAZOLE) [Concomitant]
     Active Substance: OMEPRAZOLE MAGNESIUM
  7. ZOCOR [Concomitant]
     Active Substance: SIMVASTATIN
  8. COREG [Concomitant]
     Active Substance: CARVEDILOL

REACTIONS (2)
  - Arthralgia [None]
  - Heart rate increased [None]

NARRATIVE: CASE EVENT DATE: 201103
